FAERS Safety Report 13117590 (Version 2)
Quarter: 2017Q1

REPORT INFORMATION
  Report Type: Spontaneous
  Country: US (occurrence: US)
  Receive Date: 20170116
  Receipt Date: 20170209
  Transmission Date: 20170428
  Serious: No
  Sender: FDA-Public Use
  Company Number: US-GLAXOSMITHKLINE-US2017004485

PATIENT
  Sex: Female
  Weight: 70 kg

DRUGS (1)
  1. BENLYSTA [Suspect]
     Active Substance: BELIMUMAB
     Indication: SYSTEMIC LUPUS ERYTHEMATOSUS
     Dosage: 710 MG, UNK
     Route: 042
     Dates: start: 20161222

REACTIONS (1)
  - Thrombophlebitis [Recovered/Resolved]
